FAERS Safety Report 8972213 (Version 1)
Quarter: 2012Q4

REPORT INFORMATION
  Report Type: 
  Country: US (occurrence: US)
  Receive Date: 20121219
  Receipt Date: 20121219
  Transmission Date: 20130627
  Serious: Yes (Other)
  Sender: FDA-Public Use
  Company Number: US-MYLANLABS-2012S1010037

PATIENT
  Age: 58 Year
  Sex: Male

DRUGS (5)
  1. LEVETIRACETAM [Suspect]
     Indication: CONVULSION
     Route: 048
     Dates: start: 201204, end: 201205
  2. LAMOTRIGINE [Concomitant]
     Route: 048
     Dates: start: 1996
  3. CALCIUM [Concomitant]
     Route: 048
  4. AMLODIPINE [Concomitant]
     Route: 048
  5. LORAZEPAM [Concomitant]
     Route: 048

REACTIONS (2)
  - Drug ineffective [Not Recovered/Not Resolved]
  - Convulsion [Not Recovered/Not Resolved]
